FAERS Safety Report 5555761-5 (Version None)
Quarter: 2007Q4

REPORT INFORMATION
  Report Type: 
  Country: None (occurrence: None)
  Receive Date: 20071213
  Receipt Date: 20071201
  Transmission Date: 20080405
  Serious: Yes (Other)
  Sender: FDA-Public Use
  Company Number: US-PFIZER INC-2007047059

PATIENT
  Age: 51 Year
  Sex: Male

DRUGS (3)
  1. CHANTIX [Suspect]
  2. TESTOSTERONE [Suspect]
  3. ALL OTHER THERAPEUTIC PRODUCTS [Suspect]

REACTIONS (2)
  - DELUSIONAL PERCEPTION [None]
  - MANIA [None]
